FAERS Safety Report 7430106-4 (Version None)
Quarter: 2011Q2

REPORT INFORMATION
  Report Type: 
  Country: None (occurrence: None)
  Receive Date: 20110421
  Receipt Date: 20100415
  Transmission Date: 20111010
  Serious: No
  Sender: FDA-Public Use
  Company Number: US-ASTRAZENECA-2010SE16804

PATIENT
  Age: 77 Year
  Sex: Male
  Weight: 68 kg

DRUGS (7)
  1. TRILIPIX [Concomitant]
  2. METOPROLOL SUCCINATE [Suspect]
     Route: 048
     Dates: end: 20100107
  3. METOPROLOL SUCCINATE [Suspect]
     Route: 048
     Dates: start: 20091208, end: 20091201
  4. METOPROLOL SUCCINATE [Suspect]
     Route: 048
     Dates: start: 20071202, end: 20091208
  5. METOPROLOL SUCCINATE [Suspect]
     Route: 048
     Dates: start: 20091201, end: 20091201
  6. CRESTOR [Concomitant]
  7. ALLOPURINOL [Concomitant]

REACTIONS (4)
  - RENAL DISORDER [None]
  - TINNITUS [None]
  - MENTAL DISORDER [None]
  - HYPERTENSION [None]
